FAERS Safety Report 6753692-6 (Version None)
Quarter: 2010Q2

REPORT INFORMATION
  Report Type: 
  Country: None (occurrence: None)
  Receive Date: 20100603
  Receipt Date: 20100525
  Transmission Date: 20101027
  Serious: Yes (Death, Life-Threatening)
  Sender: FDA-Public Use
  Company Number: JP-BRISTOL-MYERS SQUIBB COMPANY-15125537

PATIENT
  Age: 25 Year
  Sex: Male

DRUGS (5)
  1. PARAPLATIN [Suspect]
     Indication: GERM CELL CANCER
     Route: 041
  2. IFOMIDE [Suspect]
     Indication: GERM CELL CANCER
     Dosage: INJ
  3. RANDA [Suspect]
     Indication: GERM CELL CANCER
     Route: 041
  4. LASTET INJ [Suspect]
     Indication: GERM CELL CANCER
     Route: 041
  5. BLEO [Suspect]
     Indication: GERM CELL CANCER

REACTIONS (2)
  - BONE MARROW FAILURE [None]
  - INFECTION [None]
